FAERS Safety Report 7286469-6 (Version None)
Quarter: 2011Q1

REPORT INFORMATION
  Report Type: 
  Country: None (occurrence: None)
  Receive Date: 20110210
  Receipt Date: 20110210
  Transmission Date: 20110831
  Serious: Yes (Hospitalization)
  Sender: FDA-Public Use
  Company Number: DE-B.I. PHARMACEUTICALS,INC./RIDGEFIELD-2010-DE-02945DE

PATIENT
  Sex: Female

DRUGS (3)
  1. CBV/COM [Concomitant]
     Indication: HIV INFECTION
     Dosage: 900 MG
     Route: 048
     Dates: start: 19990304
  2. AZT [Concomitant]
     Indication: PROPHYLAXIS AGAINST HIV INFECTION
     Route: 042
     Dates: start: 20010612, end: 20010612
  3. VIRAMUNE [Suspect]
     Indication: HIV INFECTION
     Dosage: 400 MG
     Route: 048
     Dates: start: 19990304

REACTIONS (1)
  - CAESAREAN SECTION [None]
